FAERS Safety Report 19374824 (Version 2)
Quarter: 2021Q2

REPORT INFORMATION
  Report Type: Spontaneous
  Country: US (occurrence: US)
  Receive Date: 20210604
  Receipt Date: 20210621
  Transmission Date: 20210717
  Serious: No
  Sender: FDA-Public Use
  Company Number: US-PFIZER INC-2021264774

PATIENT
  Age: 70 Year
  Sex: Male
  Weight: 72.57 kg

DRUGS (3)
  1. XALKORI [Suspect]
     Active Substance: CRIZOTINIB
     Indication: CHONDROSARCOMA
  2. XALKORI [Suspect]
     Active Substance: CRIZOTINIB
     Indication: PULMONARY MASS
  3. XALKORI [Suspect]
     Active Substance: CRIZOTINIB
     Indication: NON-HODGKIN^S LYMPHOMA
     Dosage: 250 MG, 2X/DAY (250MG. ONE CAPSULE TWICE DAILY BY MOUTH)
     Route: 048
     Dates: start: 20210215

REACTIONS (8)
  - Dizziness [Recovering/Resolving]
  - Skin discolouration [Recovering/Resolving]
  - Off label use [Unknown]
  - Fatigue [Unknown]
  - Somnolence [Unknown]
  - Vision blurred [Recovering/Resolving]
  - Visual impairment [Unknown]
  - Halo vision [Unknown]

NARRATIVE: CASE EVENT DATE: 202102
